FAERS Safety Report 8888666 (Version 1)
Quarter: 2012Q4

REPORT INFORMATION
  Report Type: 
  Country: US (occurrence: US)
  Receive Date: 20121106
  Receipt Date: 20121106
  Transmission Date: 20130627
  Serious: Yes (Hospitalization)
  Sender: FDA-Public Use
  Company Number: US-COVIDIEN/TYCO HEALTHCARE/MALLINCKRODT-T201203515

PATIENT
  Age: 67 Year
  Sex: Female

DRUGS (6)
  1. PENNSAID [Suspect]
     Indication: ARTHRITIS
     Dosage: 20 Gtt, tid on right ankle
     Route: 061
     Dates: start: 201203
  2. PENNSAID [Suspect]
     Dosage: 20 Gtt, tid on left ankle
     Route: 061
     Dates: start: 2012, end: 201208
  3. INSULIN [Concomitant]
     Dosage: UNK
  4. LEVOTHYROXINE [Concomitant]
     Indication: HYPOTHYROIDISM
     Dosage: UNK
  5. LISINOPRIL [Concomitant]
     Indication: BLOOD PRESSURE
     Dosage: UNK
  6. MIRALAX                            /00754501/ [Concomitant]
     Dosage: UNK

REACTIONS (2)
  - Generalised oedema [Not Recovered/Not Resolved]
  - Oedema peripheral [Not Recovered/Not Resolved]
